FAERS Safety Report 26196383 (Version 1)
Quarter: 2025Q4

REPORT INFORMATION
  Report Type: Spontaneous
  Country: EU (occurrence: EU)
  Receive Date: 20251224
  Receipt Date: 20251224
  Transmission Date: 20260118
  Serious: Yes (Hospitalization)
  Sender: BAUSCH AND LOMB
  Company Number: None

PATIENT
  Age: 74 Year
  Sex: Male
  Weight: 66 kg

DRUGS (2)
  1. LORAZEPAM [Suspect]
     Active Substance: LORAZEPAM
     Indication: Product used for unknown indication
     Route: 048
     Dates: start: 202303
  2. NEFOPAM HYDROCHLORIDE [Suspect]
     Active Substance: NEFOPAM HYDROCHLORIDE
     Indication: Product used for unknown indication
     Route: 048
     Dates: start: 2018

REACTIONS (4)
  - Gamma-glutamyltransferase increased [Recovered/Resolved]
  - Behaviour disorder [Not Recovered/Not Resolved]
  - Transaminases increased [Recovered/Resolved]
  - Drug use disorder [Recovering/Resolving]

NARRATIVE: CASE EVENT DATE: 20180101
